FAERS Safety Report 7598085 (Version 2)
Quarter: 2013Q3

REPORT INFORMATION
  Report Type: Spontaneous
  Country: US (occurrence: US)
  Receive Date: 20100920
  Receipt Date: 20130814
  Transmission Date: 20140515
  Serious: Yes (Hospitalization)
  Sender: FDA-Public Use
  Company Number: US-ASTRAZENECA-2010SE12899

PATIENT
  Age: 64 Year
  Sex: Female
  Weight: 61.2 kg

DRUGS (19)
  1. SEROQUEL XR [Suspect]
     Indication: BIPOLAR DISORDER
     Route: 048
     Dates: start: 2007
  2. SEROQUEL XR [Suspect]
     Indication: BIPOLAR DISORDER
     Route: 048
     Dates: start: 20100313
  3. SEROQUEL XR [Suspect]
     Indication: BIPOLAR DISORDER
     Dosage: CUTTING MEDICATION IN HALF
     Route: 048
  4. OMEPRAZOLE [Suspect]
     Indication: BIPOLAR DISORDER
     Route: 048
     Dates: start: 201302
  5. LAMICTAL [Concomitant]
     Indication: MOOD SWINGS
     Route: 048
     Dates: start: 2005
  6. HYOSCYAMINE [Concomitant]
     Indication: BLADDER DISORDER
     Route: 048
     Dates: start: 2005
  7. DETROL LA [Concomitant]
     Indication: BLADDER DISORDER
     Route: 048
     Dates: start: 2005
  8. DETROL LA [Concomitant]
     Indication: CYSTITIS INTERSTITIAL
     Route: 048
     Dates: start: 2005
  9. MOBIC [Concomitant]
     Indication: PAIN
     Route: 048
     Dates: start: 1995
  10. MOBIC [Concomitant]
     Indication: ARTHRITIS
     Route: 048
     Dates: start: 1995
  11. SYNTHROID [Concomitant]
     Indication: HYPOTHYROIDISM
     Route: 048
     Dates: start: 1998
  12. METHADONE [Concomitant]
     Indication: PAIN
  13. PERCOCET [Concomitant]
     Indication: BREAKTHROUGH PAIN
     Dosage: 10/325MG
     Route: 048
     Dates: start: 2004
  14. GABAPENTIN [Concomitant]
     Indication: NEURALGIA
     Route: 048
     Dates: start: 201302
  15. LORAZEPAM [Concomitant]
     Indication: ANXIETY
     Route: 048
     Dates: start: 2010, end: 2010
  16. LORAZEPAM [Concomitant]
     Indication: ANXIETY
     Route: 048
     Dates: start: 2013
  17. FERROUS SULFATE [Concomitant]
     Indication: BLOOD IRON DECREASED
     Route: 048
     Dates: start: 201305
  18. FERROUS SULFATE [Concomitant]
     Indication: ANAEMIA
     Route: 048
     Dates: start: 201305
  19. SERTRALINE [Concomitant]
     Indication: MAJOR DEPRESSION
     Route: 048
     Dates: start: 2002

REACTIONS (13)
  - Weight decreased [Unknown]
  - Transient ischaemic attack [Unknown]
  - Oesophageal disorder [Unknown]
  - Arthritis [Unknown]
  - Feeling jittery [Not Recovered/Not Resolved]
  - Insomnia [Not Recovered/Not Resolved]
  - Drug withdrawal syndrome [Unknown]
  - Dysphagia [Not Recovered/Not Resolved]
  - Hypersomnia [Unknown]
  - Somnolence [Unknown]
  - Dyspepsia [Unknown]
  - Drug dose omission [Unknown]
  - Intentional drug misuse [Unknown]
